FAERS Safety Report 13640802 (Version 1)
Quarter: 2017Q2

REPORT INFORMATION
  Report Type: Report from Study
  Country: US (occurrence: US)
  Receive Date: 20170612
  Receipt Date: 20170612
  Transmission Date: 20170830
  Serious: Yes (Hospitalization, Other)
  Sender: FDA-Public Use
  Company Number: US-UCBSA-2017022348

PATIENT
  Age: 33 Year
  Sex: Female

DRUGS (1)
  1. LACOSAMIDE. [Suspect]
     Active Substance: LACOSAMIDE
     Indication: PRODUCT USED FOR UNKNOWN INDICATION
     Dosage: UNK

REACTIONS (9)
  - Adverse drug reaction [Unknown]
  - Depression [Unknown]
  - Drug ineffective [Unknown]
  - Aura [Unknown]
  - Headache [Unknown]
  - Epilepsy [Unknown]
  - Anxiety [Unknown]
  - Visual impairment [Unknown]
  - Fatigue [Unknown]
